FAERS Safety Report 15559110 (Version 1)
Quarter: 2018Q4

REPORT INFORMATION
  Report Type: Spontaneous
  Country: GB (occurrence: GB)
  Receive Date: 20181029
  Receipt Date: 20181029
  Transmission Date: 20190205
  Serious: Yes (Life-Threatening, Hospitalization, Other)
  Sender: FDA-Public Use
  Company Number: GB-TEVA-2018-GB-968982

PATIENT
  Age: 52 Year
  Sex: Female
  Weight: 64.5 kg

DRUGS (1)
  1. NITROFURANTOIN. [Suspect]
     Active Substance: NITROFURANTOIN
     Indication: URINARY TRACT INFECTION
     Route: 048
     Dates: start: 20180806, end: 20180813

REACTIONS (7)
  - Diarrhoea [Unknown]
  - Jaundice [Unknown]
  - Oral candidiasis [Recovering/Resolving]
  - Vomiting [Unknown]
  - Hepatic cirrhosis [Unknown]
  - Nausea [Unknown]
  - Faeces discoloured [Unknown]

NARRATIVE: CASE EVENT DATE: 20180808
